FAERS Safety Report 10145782 (Version 2)
Quarter: 2015Q1

REPORT INFORMATION
  Report Type: Spontaneous
  Country: US (occurrence: None)
  Receive Date: 20140429
  Receipt Date: 20150327
  Transmission Date: 20150720
  Serious: Yes (Hospitalization)
  Sender: FDA-Public Use
  Company Number: 201404061

PATIENT
  Age: 50 Year
  Sex: Male
  Weight: 97.07 kg

DRUGS (11)
  1. VITAMINS NOS [Concomitant]
     Active Substance: VITAMINS
  2. CALCIUM CARBONATE. [Concomitant]
     Active Substance: CALCIUM CARBONATE
  3. LISINOPRIL. [Concomitant]
     Active Substance: LISINOPRIL
  4. ROSUVASTATIN [Concomitant]
     Active Substance: ROSUVASTATIN
  5. ANDROGEL [Suspect]
     Active Substance: TESTOSTERONE
     Indication: BLOOD TESTOSTERONE DECREASED
     Dosage: 1 PUMP TOPICALLY TO UPPER ARM AND SHOULDER EACH DAY, TOPICAL
     Route: 061
     Dates: start: 200908, end: 201001
  6. WARFARIN [Concomitant]
     Active Substance: WARFARIN
  7. ASPIRIN (ACETYLSALICYLIC ACID) [Concomitant]
     Active Substance: ASPIRIN
  8. PANTOPRAZOLE [Concomitant]
     Active Substance: PANTOPRAZOLE SODIUM
  9. METOPROLOL [Concomitant]
     Active Substance: METOPROLOL
  10. TESTOPEL [Suspect]
     Active Substance: TESTOSTERONE
     Indication: BLOOD TESTOSTERONE DECREASED
     Dates: start: 201108
  11. DEPO-TESTOSTERONE [Suspect]
     Active Substance: TESTOSTERONE CYPIONATE
     Indication: BLOOD TESTOSTERONE DECREASED
     Dates: start: 201002, end: 201107

REACTIONS (1)
  - Myocardial infarction [None]

NARRATIVE: CASE EVENT DATE: 20120419
